FAERS Safety Report 19725229 (Version 1)
Quarter: 2021Q3

REPORT INFORMATION
  Report Type: Spontaneous
  Country: US (occurrence: US)
  Receive Date: 20210819
  Receipt Date: 20210819
  Transmission Date: 20211014
  Serious: No
  Sender: FDA-Public Use
  Company Number: None

PATIENT
  Sex: Female
  Weight: 36 kg

DRUGS (2)
  1. IBRANCE [Suspect]
     Active Substance: PALBOCICLIB
     Indication: BREAST CANCER
     Route: 048
     Dates: start: 20210729
  2. ANASTRAZOLE [Concomitant]
     Active Substance: ANASTROZOLE

REACTIONS (3)
  - Cough [None]
  - Dyspnoea [None]
  - Fatigue [None]
